FAERS Safety Report 9222507 (Version 1)
Quarter: 2013Q2

REPORT INFORMATION
  Report Type: Spontaneous
  Country: US (occurrence: US)
  Receive Date: 20130410
  Receipt Date: 20130410
  Transmission Date: 20140414
  Serious: Yes (Hospitalization)
  Sender: FDA-Public Use
  Company Number: US-BAYER-2013-044904

PATIENT
  Age: 23 Year
  Sex: Female

DRUGS (3)
  1. BEYAZ [Suspect]
  2. IBUPROFEN [Concomitant]
     Dosage: UNK
     Dates: start: 20111012
  3. CEFUROXIME [Concomitant]
     Dosage: UNK
     Dates: start: 20110923

REACTIONS (1)
  - Deep vein thrombosis [None]
